FAERS Safety Report 16989967 (Version 3)
Quarter: 2020Q3

REPORT INFORMATION
  Report Type: Spontaneous
  Country: FR (occurrence: FR)
  Receive Date: 20191104
  Receipt Date: 20200908
  Transmission Date: 20201102
  Serious: Yes (Hospitalization)
  Sender: FDA-Public Use
  Company Number: FR-NOVOPROD-692504

PATIENT
  Age: 25 Year
  Sex: Male
  Weight: 65 kg

DRUGS (28)
  1. LOVENOX [LEVOFLOXACIN] [Suspect]
     Active Substance: LEVOFLOXACIN
     Indication: SUICIDE ATTEMPT
     Dosage: 1 DF
     Route: 058
     Dates: start: 20190821, end: 20190822
  2. OLIMEL [Concomitant]
     Active Substance: AMINO ACIDS\DEXTROSE\SOYBEAN OIL
     Indication: SUICIDE ATTEMPT
     Dosage: 431 ML
     Route: 042
     Dates: start: 20190821, end: 20190822
  3. HYPNOVEL [MIDAZOLAM HYDROCHLORIDE] [Suspect]
     Active Substance: MIDAZOLAM HYDROCHLORIDE
     Indication: SUICIDE ATTEMPT
     Dosage: 137 KIU
     Route: 042
     Dates: start: 20190821, end: 20190822
  4. TERCIAN [CYAMEMAZINE TARTRATE] [Concomitant]
     Active Substance: CYAMEMAZINE
     Indication: DEPRESSION
     Dosage: 1 DF
     Route: 048
     Dates: start: 20190830
  5. POLYETHYLENE GLYCOL [Suspect]
     Active Substance: POLYETHYLENE GLYCOLS
     Indication: SUICIDE ATTEMPT
     Dosage: 3 L, QD
     Route: 042
     Dates: start: 20190821, end: 20190821
  6. NIMBEX [Suspect]
     Active Substance: CISATRACURIUM BESYLATE
     Indication: SUICIDE ATTEMPT
     Dosage: 125 MG
     Route: 042
     Dates: start: 20190820, end: 20190821
  7. SODIUM CHLORIDE. [Suspect]
     Active Substance: SODIUM CHLORIDE
     Indication: SUICIDE ATTEMPT
     Dosage: 1519 ML
     Route: 042
     Dates: start: 20190820, end: 20190823
  8. THERALENE [Concomitant]
     Active Substance: TRIMEPRAZINE
     Indication: DEPRESSION
     Dosage: 25 DROP
     Route: 048
  9. CHLORURE DE POTASSIUM [Suspect]
     Active Substance: POTASSIUM CHLORIDE
     Indication: SUICIDE ATTEMPT
     Dosage: 31.75 G
     Route: 042
     Dates: start: 20190820, end: 20190823
  10. TERLIPRESSINE [TERLIPRESSIN ACETATE] [Suspect]
     Active Substance: TERLIPRESSIN
     Indication: SUICIDE ATTEMPT
     Dosage: UNK
     Route: 042
     Dates: start: 20190820
  11. FENTANYL. [Suspect]
     Active Substance: FENTANYL
     Indication: SUICIDE ATTEMPT
     Dosage: 2500 ???G
     Route: 042
     Dates: start: 20190821, end: 20190822
  12. CHLORURE DE CALCIUM [Suspect]
     Active Substance: CALCIUM CHLORIDE
     Indication: SUICIDE ATTEMPT
     Dosage: UNK
     Route: 042
     Dates: start: 20190820, end: 20190823
  13. EAU POUR PREPARATIONS INJECTABLES [Suspect]
     Active Substance: WATER
     Indication: SUICIDE ATTEMPT
     Dosage: 1453 ML
     Route: 042
     Dates: start: 20190820, end: 20190823
  14. AMLODIPINE [Concomitant]
     Active Substance: AMLODIPINE BESYLATE
     Indication: HYPERTENSION
     Dosage: 5 MG, QD
     Route: 048
  15. CHARBON COOPER [Concomitant]
     Indication: SUICIDE ATTEMPT
     Dosage: 200 G
     Route: 048
     Dates: start: 20190820, end: 20190821
  16. GLUCOSE [Suspect]
     Active Substance: DEXTROSE
     Indication: SUICIDE ATTEMPT
     Dosage: 3400 ML
     Route: 042
     Dates: start: 20190820, end: 20190823
  17. CERNEVIT [Suspect]
     Active Substance: VITAMINS
     Indication: SUICIDE ATTEMPT
     Dosage: 1 L
     Route: 042
     Dates: start: 20190821, end: 20190823
  18. NORADRENALINE [NOREPINEPHRINE] [Suspect]
     Active Substance: NOREPINEPHRINE
     Indication: SUICIDE ATTEMPT
     Dosage: UNK
     Route: 042
     Dates: start: 20190820, end: 20190822
  19. GLYPRESSINE [Suspect]
     Active Substance: TERLIPRESSIN
     Indication: SUICIDE ATTEMPT
     Dosage: 143 MG
     Route: 042
     Dates: start: 20190820, end: 20190821
  20. BICARBONATE DE SODIUM AGUETTANT [Suspect]
     Active Substance: SODIUM BICARBONATE
     Indication: SUICIDE ATTEMPT
     Dosage: UNK
     Route: 042
     Dates: start: 20190820
  21. GLUCOSE [Suspect]
     Active Substance: DEXTROSE
     Indication: SUICIDE ATTEMPT
     Dosage: 390 ML, QD
     Route: 042
     Dates: start: 20190823, end: 20190823
  22. INTRALIPIDE [Suspect]
     Active Substance: SOYBEAN OIL
     Indication: TOXICITY TO VARIOUS AGENTS
     Dosage: UNK
     Route: 042
     Dates: start: 20190820, end: 20190823
  23. PAROXETINE. [Concomitant]
     Active Substance: PAROXETINE
     Indication: DEPRESSION
     Dosage: 20 MG, QD
     Route: 048
     Dates: start: 20190715
  24. GLUCOSE [Suspect]
     Active Substance: DEXTROSE
     Indication: SUICIDE ATTEMPT
     Dosage: 4420 ML
     Route: 042
     Dates: start: 20190820, end: 20190822
  25. ESMERON [Suspect]
     Active Substance: ROCURONIUM BROMIDE
     Indication: SUICIDE ATTEMPT
     Dosage: 70 MG, QD
     Route: 042
     Dates: start: 20190820, end: 20190820
  26. ACTRAPID [Suspect]
     Active Substance: INSULIN HUMAN
     Indication: SUICIDE ATTEMPT
     Dosage: 2960 IU
     Route: 042
     Dates: start: 20190820, end: 20190821
  27. QUETIAPINE. [Concomitant]
     Active Substance: QUETIAPINE
     Indication: DEPRESSION
     Dosage: 800 MG, QD
     Route: 048
     Dates: start: 20190718
  28. LORMETAZEPAM [Concomitant]
     Active Substance: LORMETAZEPAM
     Indication: DEPRESSION
     Dosage: 2 MG, QD
     Route: 048
     Dates: start: 20190714

REACTIONS (2)
  - Thrombophlebitis superficial [Recovered/Resolved]
  - Intentional product misuse [Unknown]

NARRATIVE: CASE EVENT DATE: 20190820
